FAERS Safety Report 22279545 (Version 4)
Quarter: 2023Q4

REPORT INFORMATION
  Report Type: Report from Study
  Country: US (occurrence: US)
  Receive Date: 20230503
  Receipt Date: 20231229
  Transmission Date: 20240110
  Serious: Yes (Other)
  Sender: FDA-Public Use
  Company Number: US-TAKEDA-2023TUS041542

PATIENT
  Sex: Female
  Weight: 207 kg

DRUGS (3)
  1. BRIGATINIB [Suspect]
     Active Substance: BRIGATINIB
     Indication: Bronchial carcinoma
     Dosage: 90 MILLIGRAM, QD
     Route: 048
     Dates: start: 20230307
  2. BRIGATINIB [Suspect]
     Active Substance: BRIGATINIB
     Dosage: 180 MILLIGRAM, QD
     Route: 048
  3. BRIGATINIB [Suspect]
     Active Substance: BRIGATINIB
     Dosage: 180 MILLIGRAM, QD
     Route: 048

REACTIONS (9)
  - Hepatic neoplasm [Unknown]
  - Renal neoplasm [Unknown]
  - Brain neoplasm [Unknown]
  - Skin disorder [Unknown]
  - Weight decreased [Unknown]
  - Photosensitivity reaction [Unknown]
  - Rash [Unknown]
  - Myalgia [Unknown]
  - Diarrhoea [Unknown]
